FAERS Safety Report 16640463 (Version 2)
Quarter: 2019Q3

REPORT INFORMATION
  Report Type: Spontaneous
  Country: US (occurrence: US)
  Receive Date: 20190729
  Receipt Date: 20190826
  Transmission Date: 20191004
  Serious: No
  Sender: FDA-Public Use
  Company Number: US-BIOGEN-2019BI00765598

PATIENT
  Age: 14 Year
  Sex: Male

DRUGS (3)
  1. SPINRAZA [Suspect]
     Active Substance: NUSINERSEN
     Indication: SPINAL MUSCULAR ATROPHY
     Dosage: LOADING DOSE
     Route: 065
     Dates: start: 20190718
  2. SPINRAZA [Suspect]
     Active Substance: NUSINERSEN
     Dosage: MAINTENANCE DOSES
     Route: 065
  3. SPINRAZA [Suspect]
     Active Substance: NUSINERSEN
     Dosage: FOURTH LOADING DOSE
     Route: 065

REACTIONS (3)
  - Headache [Recovered/Resolved with Sequelae]
  - Nausea [Not Recovered/Not Resolved]
  - Back pain [Recovered/Resolved]

NARRATIVE: CASE EVENT DATE: 20190718
